FAERS Safety Report 9465303 (Version 1)
Quarter: 2013Q3

REPORT INFORMATION
  Report Type: Spontaneous
  Country: DE (occurrence: DE)
  Receive Date: 20130820
  Receipt Date: 20130820
  Transmission Date: 20140515
  Serious: Yes (Death, Other)
  Sender: FDA-Public Use
  Company Number: DE-MERCK-1308DEU004752

PATIENT
  Age: 69 Year
  Sex: Male

DRUGS (4)
  1. SIMVASTATIN [Suspect]
     Indication: CORONARY ARTERY DISEASE
     Dosage: 80 MG, UNK
     Route: 048
  2. ATORVASTATIN [Interacting]
     Indication: CORONARY ARTERY DISEASE
     Dosage: 80 MG, UNK
     Route: 048
  3. TORSEMIDE [Concomitant]
     Dosage: 100 MG, TAKEN FOR A LONGER TIME
     Route: 048
  4. ASS 100 [Concomitant]
     Indication: CORONARY ARTERY DISEASE
     Dosage: TAKEN FOR A LONGER TIME
     Route: 048

REACTIONS (3)
  - Overdose [Fatal]
  - Renal failure acute [Fatal]
  - Rhabdomyolysis [Fatal]
